FAERS Safety Report 9100384 (Version 1)
Quarter: 2013Q1

REPORT INFORMATION
  Report Type: Spontaneous
  Country: US (occurrence: US)
  Receive Date: 20130215
  Receipt Date: 20130215
  Transmission Date: 20140127
  Serious: Yes (Hospitalization, Other)
  Sender: FDA-Public Use
  Company Number: US-NOVOPROD-365982

PATIENT
  Age: 53 Year
  Sex: Female
  Weight: 90.7 kg

DRUGS (9)
  1. NOVOLIN 70/30 [Suspect]
     Indication: TYPE 1 DIABETES MELLITUS
     Dosage: SLIDING SCALE
     Route: 058
     Dates: start: 2000, end: 201211
  2. LEVEMIR [Suspect]
     Indication: TYPE 1 DIABETES MELLITUS
     Dosage: 12 U, QD, AT BEDTIME
     Route: 058
     Dates: start: 2012
  3. LEVEMIR [Suspect]
     Dosage: 18 U, QD
     Route: 058
     Dates: start: 2012
  4. LEVEMIR [Suspect]
     Dosage: 28 U QD, 18U IN AM, 10U IN PM
     Route: 058
     Dates: start: 201211
  5. PLAVIX [Concomitant]
     Indication: PRODUCT USED FOR UNKNOWN INDICATION
     Dosage: 75 MG, QD
     Route: 048
  6. CELEXA                             /00582602/ [Concomitant]
     Indication: PRODUCT USED FOR UNKNOWN INDICATION
     Dosage: 20 MG, QD
     Route: 048
  7. ZOCOR [Concomitant]
     Indication: PRODUCT USED FOR UNKNOWN INDICATION
     Dosage: 20 MG, QD
     Route: 048
  8. NEURONTIN [Concomitant]
     Indication: PRODUCT USED FOR UNKNOWN INDICATION
     Dosage: 300 MG, QD AT BEDTIME
     Route: 048
  9. KLOR-CON [Concomitant]
     Indication: PRODUCT USED FOR UNKNOWN INDICATION
     Dosage: 40 MEQ, QD
     Route: 048

REACTIONS (9)
  - Pancreatitis [Unknown]
  - Renal failure acute [Unknown]
  - Diabetic ketoacidosis [Unknown]
  - Diabetic hyperglycaemic coma [Recovered/Resolved]
  - Hypoalbuminaemia [Unknown]
  - Oedema peripheral [Recovering/Resolving]
  - Rash pruritic [Unknown]
  - Rash macular [Unknown]
  - Blood glucose increased [Recovering/Resolving]
